FAERS Safety Report 13043071 (Version 2)
Quarter: 2016Q4

REPORT INFORMATION
  Report Type: Spontaneous
  Country: TR (occurrence: TR)
  Receive Date: 20161219
  Receipt Date: 20161223
  Transmission Date: 20170207
  Serious: Yes (Life-Threatening, Hospitalization)
  Sender: FDA-Public Use
  Company Number: PHHY2016TR172179

PATIENT
  Age: 45 Year
  Sex: Female

DRUGS (5)
  1. AMISULPRIDE [Suspect]
     Active Substance: AMISULPRIDE
     Indication: PRODUCT USED FOR UNKNOWN INDICATION
     Dosage: 28 G, UNK
     Route: 048
  2. ARIPIPRAZOLE. [Suspect]
     Active Substance: ARIPIPRAZOLE
     Indication: PRODUCT USED FOR UNKNOWN INDICATION
     Dosage: 45 MG, UNK
     Route: 048
  3. DIAZEPAM. [Suspect]
     Active Substance: DIAZEPAM
     Indication: PRODUCT USED FOR UNKNOWN INDICATION
     Dosage: 250 MG, UNK
     Route: 048
  4. VALSARTAN. [Suspect]
     Active Substance: VALSARTAN
     Indication: PRODUCT USED FOR UNKNOWN INDICATION
     Dosage: 2240 MG, UNK
     Route: 048
  5. PALIPERIDONE. [Suspect]
     Active Substance: PALIPERIDONE
     Indication: PRODUCT USED FOR UNKNOWN INDICATION
     Dosage: 21 MG, UNK
     Route: 048

REACTIONS (11)
  - Cardiotoxicity [Recovered/Resolved]
  - Atrial fibrillation [Recovered/Resolved]
  - Hypotension [Recovered/Resolved]
  - Acidosis [Recovered/Resolved]
  - Depressed level of consciousness [Recovered/Resolved]
  - Suicide attempt [Unknown]
  - Respiratory depression [Recovered/Resolved]
  - Agitation [Recovered/Resolved]
  - Electrocardiogram QT prolonged [Recovered/Resolved]
  - Bradycardia [Recovered/Resolved]
  - Toxicity to various agents [Recovered/Resolved]
